FAERS Safety Report 22072385 (Version 1)
Quarter: 2023Q1

REPORT INFORMATION
  Report Type: Report from Study
  Country: US (occurrence: None)
  Receive Date: 20230308
  Receipt Date: 20230308
  Transmission Date: 20230418
  Serious: Yes (Hospitalization)
  Sender: FDA-Public Use
  Company Number: US-ROCHE-1996012

PATIENT
  Age: 33 Year
  Sex: Male
  Weight: 188.7 kg

DRUGS (1)
  1. ATEZOLIZUMAB [Suspect]
     Active Substance: ATEZOLIZUMAB
     Indication: Alveolar soft part sarcoma
     Dosage: TAC 1: OVER 60 MINUTES ON DAY 1?1200 MG IV OVER 60 MINUTES ON DAY 1 (LAST ADMINISTERED DATE 08/29/20
     Route: 041
     Dates: start: 20170606

REACTIONS (5)
  - Fracture [Unknown]
  - Hypertension [Unknown]
  - Pain in extremity [Unknown]
  - Hyperthyroidism [Unknown]
  - Aspartate aminotransferase increased [Unknown]

NARRATIVE: CASE EVENT DATE: 20170808
